FAERS Safety Report 18789078 (Version 1)
Quarter: 2021Q1

REPORT INFORMATION
  Report Type: Spontaneous
  Country: US (occurrence: US)
  Receive Date: 20210126
  Receipt Date: 20210126
  Transmission Date: 20210419
  Serious: No
  Sender: FDA-Public Use
  Company Number: US-BAYER-2021-031173

PATIENT
  Age: 81 Year
  Sex: Male

DRUGS (3)
  1. MIRALAX [Suspect]
     Active Substance: POLYETHYLENE GLYCOL 3350
     Indication: GASTROINTESTINAL DISORDER
     Dosage: UNK
     Route: 048
     Dates: start: 20210117, end: 20210119
  2. MIRALAX [Suspect]
     Active Substance: POLYETHYLENE GLYCOL 3350
     Indication: GASTROINTESTINAL DISORDER
     Dosage: 2 DF
     Route: 048
     Dates: start: 20210118, end: 20210118
  3. LINZESS [Suspect]
     Active Substance: LINACLOTIDE

REACTIONS (3)
  - Infrequent bowel movements [Unknown]
  - Extra dose administered [Unknown]
  - Back pain [Unknown]

NARRATIVE: CASE EVENT DATE: 202101
